FAERS Safety Report 15621918 (Version 1)
Quarter: 2018Q4

REPORT INFORMATION
  Report Type: Spontaneous
  Country: DK (occurrence: DK)
  Receive Date: 20181115
  Receipt Date: 20181115
  Transmission Date: 20190205
  Serious: Yes (Hospitalization, Disabling, Other)
  Sender: FDA-Public Use
  Company Number: DK-TEVA-2018-DK-975540

PATIENT
  Age: 19 Year
  Sex: Female

DRUGS (1)
  1. LAMOTRIGINE. [Suspect]
     Active Substance: LAMOTRIGINE
     Indication: EPILEPSY
     Route: 065
     Dates: start: 20160216

REACTIONS (10)
  - Toxic epidermal necrolysis [Unknown]
  - Rash generalised [Unknown]
  - Stevens-Johnson syndrome [Unknown]
  - Genital pain [Unknown]
  - Eye symptom [Unknown]
  - Drug hypersensitivity [Unknown]
  - Oral mucosal blistering [Unknown]
  - Swelling face [Unknown]
  - Pain in extremity [Unknown]
  - Oral pain [Unknown]

NARRATIVE: CASE EVENT DATE: 20160314
